FAERS Safety Report 4641497-1 (Version None)
Quarter: 2005Q2

REPORT INFORMATION
  Report Type: 
  Country: None (occurrence: None)
  Receive Date: 20050421
  Receipt Date: 20050119
  Transmission Date: 20051028
  Serious: Yes (Other)
  Sender: FDA-Public Use
  Company Number: FR-GLAXOSMITHKLINE-B0365638A

PATIENT
  Age: 29 Year
  Sex: Male
  Weight: 73 kg

DRUGS (1)
  1. ZEFFIX [Suspect]
     Indication: HEPATITIS B
     Dosage: 100MG PER DAY
     Route: 048
     Dates: start: 20041103, end: 20050119

REACTIONS (1)
  - NEUTROPENIA [None]
